FAERS Safety Report 13705860 (Version 1)
Quarter: 2017Q2

REPORT INFORMATION
  Report Type: Spontaneous
  Country: SE (occurrence: SE)
  Receive Date: 20170630
  Receipt Date: 20170630
  Transmission Date: 20170830
  Serious: Yes (Other)
  Sender: FDA-Public Use
  Company Number: SE-JNJFOC-20170612300

PATIENT
  Age: 70 Year
  Sex: Female

DRUGS (8)
  1. RISPERDAL CONSTA [Suspect]
     Active Substance: RISPERIDONE
     Indication: EATING DISORDER
     Route: 065
     Dates: start: 2004
  2. RISPERDAL CONSTA [Suspect]
     Active Substance: RISPERIDONE
     Indication: PSYCHOTIC DISORDER
     Route: 065
     Dates: end: 20160525
  3. NEXIUM [Suspect]
     Active Substance: ESOMEPRAZOLE MAGNESIUM
     Indication: PRODUCT USED FOR UNKNOWN INDICATION
     Route: 065
  4. RISPERDAL CONSTA [Suspect]
     Active Substance: RISPERIDONE
     Indication: EATING DISORDER
     Route: 065
     Dates: end: 20160525
  5. RISPERDAL CONSTA [Suspect]
     Active Substance: RISPERIDONE
     Indication: PSYCHOTIC DISORDER
     Route: 065
     Dates: start: 2004
  6. RISPERDAL CONSTA [Suspect]
     Active Substance: RISPERIDONE
     Indication: STARVATION
     Route: 065
     Dates: end: 20160525
  7. ZYPREXA [Concomitant]
     Active Substance: OLANZAPINE
     Route: 065
  8. RISPERDAL CONSTA [Suspect]
     Active Substance: RISPERIDONE
     Indication: STARVATION
     Route: 065
     Dates: start: 2004

REACTIONS (7)
  - Atrial fibrillation [Recovering/Resolving]
  - Inappropriate schedule of drug administration [Unknown]
  - Facial paralysis [Recovered/Resolved]
  - Gastrointestinal disorder [Recovering/Resolving]
  - Unevaluable event [Recovering/Resolving]
  - Weight increased [Recovering/Resolving]
  - Breast enlargement [Recovering/Resolving]

NARRATIVE: CASE EVENT DATE: 2004
